FAERS Safety Report 17820714 (Version 2)
Quarter: 2022Q1

REPORT INFORMATION
  Report Type: Spontaneous
  Country: CH (occurrence: CH)
  Receive Date: 20200525
  Receipt Date: 20220202
  Transmission Date: 20220424
  Serious: Yes (Other)
  Sender: FDA-Public Use
  Company Number: CH-SM-2020-12986

PATIENT
  Age: 90 Year
  Sex: Female

DRUGS (18)
  1. DEXAMETHASONE [Suspect]
     Active Substance: DEXAMETHASONE
     Indication: Encephalitis
     Route: 042
     Dates: start: 20200429, end: 20200430
  2. ACYCLOVIR [Suspect]
     Active Substance: ACYCLOVIR
     Indication: Encephalitis
     Dosage: 1800 MILLIGRAM DAILY;
     Route: 065
     Dates: start: 20200429
  3. AMOXICILLIN [Suspect]
     Active Substance: AMOXICILLIN
     Indication: Encephalitis
     Dosage: 12 GRAM DAILY;
     Route: 065
     Dates: start: 20200429
  4. CEFTRIAXONE [Suspect]
     Active Substance: CEFTRIAXONE
     Indication: Encephalitis
     Dosage: 4 GRAM DAILY;
     Route: 042
     Dates: start: 20200429, end: 20200430
  5. ENOXAPARIN SODIUM [Concomitant]
     Active Substance: ENOXAPARIN SODIUM
     Dates: start: 20200430
  6. ASPIRIN [Concomitant]
     Active Substance: ASPIRIN
  7. AMLODIPINE [Concomitant]
     Active Substance: AMLODIPINE BESYLATE
     Dates: start: 20200504, end: 20200505
  8. ATORVASTATIN [Concomitant]
     Active Substance: ATORVASTATIN
  9. NEXIUM [Concomitant]
     Active Substance: ESOMEPRAZOLE MAGNESIUM
  10. IRBESARTAN [Concomitant]
     Active Substance: IRBESARTAN
  11. DAFALGAN [Concomitant]
     Active Substance: ACETAMINOPHEN
     Dates: start: 20200428
  12. CALCIUM\CHOLECALCIFEROL [Concomitant]
     Active Substance: CALCIUM\CHOLECALCIFEROL
     Dates: end: 20200430
  13. RANEXA [Concomitant]
     Active Substance: RANOLAZINE
     Dates: end: 20200430
  14. FIG FRUIT OIL\SORBITOL [Concomitant]
     Active Substance: FIG FRUIT OIL\SORBITOL
     Dates: start: 20200501
  15. NITRODERM [Concomitant]
     Active Substance: NITROGLYCERIN
     Dates: start: 20200430
  16. DORZOLAMIDE HYDROCHLORIDE AND TIMOLOL MALEATE [Concomitant]
     Active Substance: DORZOLAMIDE HYDROCHLORIDE\TIMOLOL MALEATE
  17. SODIUM PICOSULFATE [Concomitant]
     Active Substance: SODIUM PICOSULFATE
     Dosage: AS NECESSARY
     Dates: start: 20200501
  18. CLOMETHIAZOLE [Concomitant]
     Active Substance: CLOMETHIAZOLE
     Dosage: AS NECESSARY
     Dates: start: 20200502, end: 20200504

REACTIONS (1)
  - Confusional state [Not Recovered/Not Resolved]

NARRATIVE: CASE EVENT DATE: 20200502
